FAERS Safety Report 4466444-7 (Version None)
Quarter: 2004Q4

REPORT INFORMATION
  Report Type: 
  Country: None (occurrence: None)
  Receive Date: 20041005
  Receipt Date: 20040816
  Transmission Date: 20050328
  Serious: Yes (Hospitalization)
  Sender: FDA-Public Use
  Company Number: GB-MERCK-0408GBR00142

PATIENT
  Age: 67 Year
  Sex: Female

DRUGS (6)
  1. FOSAMAX [Suspect]
     Indication: OSTEOPOROSIS
     Route: 048
     Dates: start: 20031001, end: 20040601
  2. BENDROFLUMETHIAZIDE [Concomitant]
     Route: 065
  3. EVENING PRIMROSE OIL [Concomitant]
     Route: 065
  4. GARLIC EXTRACT [Concomitant]
     Route: 065
  5. LEVOTHYROXINE SODIUM [Concomitant]
     Route: 065
  6. ZOCOR [Concomitant]
     Route: 065

REACTIONS (2)
  - CHEST PAIN [None]
  - MALLORY-WEISS SYNDROME [None]
